FAERS Safety Report 23408152 (Version 1)
Quarter: 2024Q1

REPORT INFORMATION
  Report Type: Spontaneous
  Country: US (occurrence: None)
  Receive Date: 20240117
  Receipt Date: 20240117
  Transmission Date: 20240409
  Serious: No
  Sender: FDA-Public Use
  Company Number: US-ARIS GLOBAL-MDD202301-000181

PATIENT
  Age: 62 Year
  Sex: Female

DRUGS (1)
  1. MYOBLOC [Suspect]
     Active Substance: RIMABOTULINUMTOXINB
     Indication: Product used for unknown indication
     Dosage: 10000UNIT/2ML

REACTIONS (1)
  - Malaise [Unknown]

NARRATIVE: CASE EVENT DATE: 20230116
